FAERS Safety Report 24848720 (Version 2)
Quarter: 2025Q1

REPORT INFORMATION
  Report Type: Spontaneous
  Country: ES (occurrence: ES)
  Receive Date: 20250116
  Receipt Date: 20250121
  Transmission Date: 20250409
  Serious: Yes (Hospitalization, Other)
  Sender: NOVARTIS
  Company Number: ES-NORMON-202402193

PATIENT
  Age: 43 Year
  Sex: Male

DRUGS (11)
  1. HYDROCHLOROTHIAZIDE\VALSARTAN [Suspect]
     Active Substance: HYDROCHLOROTHIAZIDE\VALSARTAN
     Indication: Product used for unknown indication
     Dosage: 1 TOTAL, QD (AT BREAKFAST)
     Route: 048
  2. HYDROCHLOROTHIAZIDE\VALSARTAN [Suspect]
     Active Substance: HYDROCHLOROTHIAZIDE\VALSARTAN
     Dosage: UNK, QD (160/12.5MG, 1X/DAY AT BREAKFAST)
     Route: 048
  3. CLOZAPINE [Suspect]
     Active Substance: CLOZAPINE
     Indication: Product used for unknown indication
     Dosage: 100 MG, BID (AT LUNCH AND DINNER)
     Route: 048
  4. CLOZAPINE [Suspect]
     Active Substance: CLOZAPINE
     Dosage: 200 MG, QD (100 MG, 2X/DAY, AT LUNCH AND DINNER)
     Route: 048
  5. LAMOTRIGINE [Suspect]
     Active Substance: LAMOTRIGINE
     Indication: Product used for unknown indication
     Dosage: 100 MG, Q24H (DAILY, AT BREAKFAST)
     Route: 048
  6. LORAZEPAM [Suspect]
     Active Substance: LORAZEPAM
     Indication: Product used for unknown indication
     Dosage: 1 MG, Q8H (EVERY 8 HOURS/ 3X DAY)
     Route: 048
  7. LORAZEPAM [Suspect]
     Active Substance: LORAZEPAM
     Dosage: 3 MG, QD (1 MG, 3X/DAY)
     Route: 048
  8. ZOLPIDEM [Suspect]
     Active Substance: ZOLPIDEM TARTRATE
     Indication: Product used for unknown indication
     Dosage: 10 MG, QD (BEFORE BEDTIME)
     Route: 048
  9. ZOLPIDEM [Suspect]
     Active Substance: ZOLPIDEM TARTRATE
     Dosage: 10 MG, QD (1X/DAY, AT BEDTIME)
     Route: 048
  10. EZETIMIBE\SIMVASTATIN [Suspect]
     Active Substance: EZETIMIBE\SIMVASTATIN
     Indication: Product used for unknown indication
     Dosage: 1 DOSAGE FORM, QD (40/10 MG, 1XDAY AT DINNER)
     Route: 048
  11. EZETIMIBE\SIMVASTATIN [Suspect]
     Active Substance: EZETIMIBE\SIMVASTATIN
     Dosage: UNK, QD (40/10 MG, 1XDAY AT DINNER)
     Route: 048

REACTIONS (2)
  - Hyponatraemia [Recovering/Resolving]
  - No adverse event [Unknown]
